FAERS Safety Report 5203518-7 (Version None)
Quarter: 2007Q1

REPORT INFORMATION
  Report Type: 
  Country: None (occurrence: None)
  Receive Date: 20070105
  Receipt Date: 20061220
  Transmission Date: 20070707
  Serious: Yes (Disabling)
  Sender: FDA-Public Use
  Company Number: S07-FRA-00019-01

PATIENT
  Sex: Male

DRUGS (4)
  1. MEMANTINE HCL [Suspect]
     Indication: DEMENTIA ALZHEIMER'S TYPE
     Dosage: 20 MG QD PO
     Route: 048
     Dates: start: 20050926, end: 20060922
  2. KARDEGIC (ACETYLSALICYLATE LYSINE) [Concomitant]
  3. EQUANIL [Concomitant]
  4. NIDREL (NITRENDIPINE) [Concomitant]

REACTIONS (5)
  - ABNORMAL BEHAVIOUR [None]
  - AFFECTIVE DISORDER [None]
  - AGGRESSION [None]
  - HALLUCINATION [None]
  - SPEECH DISORDER [None]
